FAERS Safety Report 4745309-7 (Version None)
Quarter: 2005Q3

REPORT INFORMATION
  Report Type: 
  Country: None (occurrence: None)
  Receive Date: 20050815
  Receipt Date: 20050811
  Transmission Date: 20060218
  Serious: Yes (Life-Threatening, Hospitalization)
  Sender: FDA-Public Use
  Company Number: US-BRISTOL-MYERS SQUIBB COMPANY-13073432

PATIENT
  Age: 66 Year
  Sex: Male
  Weight: 112 kg

DRUGS (14)
  1. CETUXIMAB [Suspect]
     Indication: NON-SMALL CELL LUNG CANCER
     Route: 042
     Dates: start: 20050721, end: 20050721
  2. VERAPAMIL [Concomitant]
     Indication: HYPERTENSION
     Dates: start: 19670101
  3. ACCUPRIL [Concomitant]
     Indication: HYPERTENSION
     Dates: start: 19670101
  4. INDAPAMIDE [Concomitant]
     Indication: DIURETIC THERAPY
     Dates: start: 20000101
  5. COREG [Concomitant]
     Indication: HYPERTENSION
     Dates: start: 19700101
  6. IMIPRAMINE HCL [Concomitant]
     Indication: DEPRESSION
     Dates: start: 20000101
  7. PROTONIX [Concomitant]
     Indication: GASTROOESOPHAGEAL REFLUX DISEASE
  8. AMBIEN [Concomitant]
     Indication: INSOMNIA
     Dates: start: 20040101
  9. ACTOS [Concomitant]
     Indication: HYPERGLYCAEMIA
  10. FOLTX [Concomitant]
     Indication: VITAMIN SUPPLEMENTATION
  11. BENICAR [Concomitant]
     Indication: HYPERTENSION
  12. PERCOCET [Concomitant]
     Indication: PAIN
     Dates: start: 20050701
  13. METFORMIN HCL [Concomitant]
     Indication: HYPERGLYCAEMIA
     Dates: start: 20050701
  14. CRESTOR [Concomitant]
     Indication: HYPERLIPIDAEMIA

REACTIONS (4)
  - ANAPHYLACTIC REACTION [None]
  - HYPOTENSION [None]
  - RESPIRATORY ARREST [None]
  - URTICARIA [None]
